FAERS Safety Report 5092194-2 (Version None)
Quarter: 2006Q3

REPORT INFORMATION
  Report Type: 
  Country: None (occurrence: None)
  Receive Date: 20060824
  Receipt Date: 20060811
  Transmission Date: 20061208
  Serious: Yes (Other)
  Sender: FDA-Public Use
  Company Number: 2006098231

PATIENT
  Age: 65 Year
  Sex: Female
  Weight: 68.0396 kg

DRUGS (1)
  1. MINOXIDIL [Suspect]
     Indication: HYPOTRICHOSIS
     Dosage: 1 ML ONCE A DAY, TOPICAL
     Route: 061

REACTIONS (4)
  - APPLICATION SITE DRYNESS [None]
  - APPLICATION SITE PRURITUS [None]
  - BREAST CANCER FEMALE [None]
  - HAIR TEXTURE ABNORMAL [None]
